FAERS Safety Report 5245917-3 (Version None)
Quarter: 2007Q1

REPORT INFORMATION
  Report Type: 
  Country: None (occurrence: None)
  Receive Date: 20070216
  Receipt Date: 20070209
  Transmission Date: 20070707
  Serious: Yes (Hospitalization)
  Sender: FDA-Public Use
  Company Number: 2007SP002497

PATIENT
  Sex: Female

DRUGS (2)
  1. PEG-INTRON [Suspect]
  2. COPEGUS [Suspect]

REACTIONS (2)
  - SUBARACHNOID HAEMORRHAGE [None]
  - UNEVALUABLE EVENT [None]
